FAERS Safety Report 7458611-5 (Version None)
Quarter: 2011Q2

REPORT INFORMATION
  Report Type: 
  Country: None (occurrence: None)
  Receive Date: 20110503
  Receipt Date: 20110503
  Transmission Date: 20111010
  Serious: Yes (Life-Threatening, Hospitalization)
  Sender: FDA-Public Use
  Company Number: None

PATIENT
  Age: 75 Year
  Sex: Male
  Weight: 71.3 kg

DRUGS (1)
  1. PRADAXA [Suspect]
     Indication: ATRIAL FIBRILLATION
     Dosage: 150 BID PO
     Route: 048
     Dates: end: 20110430

REACTIONS (4)
  - HAEMORRHAGE [None]
  - ANAEMIA [None]
  - ASTHENIA [None]
  - GASTRIC HAEMORRHAGE [None]
